FAERS Safety Report 8321377 (Version 2)
Quarter: 2013Q4

REPORT INFORMATION
  Report Type: Spontaneous
  Country: US (occurrence: US)
  Receive Date: 20120104
  Receipt Date: 20131120
  Transmission Date: 20140711
  Serious: Yes (Hospitalization)
  Sender: FDA-Public Use
  Company Number: US-GLAXOSMITHKLINE-A0934683A

PATIENT
  Age: 55 Year
  Sex: Male

DRUGS (1)
  1. AVANDIA [Suspect]
     Indication: DIABETES MELLITUS
     Dosage: 8MG PER DAY
     Route: 048
     Dates: start: 200006, end: 200704

REACTIONS (5)
  - Cardiomyopathy [Not Recovered/Not Resolved]
  - Atrial fibrillation [Unknown]
  - Catheterisation cardiac [Unknown]
  - Heart rate irregular [Unknown]
  - Cardiac disorder [Unknown]
